FAERS Safety Report 5726990-2 (Version None)
Quarter: 2008Q2

REPORT INFORMATION
  Report Type: 
  Country: None (occurrence: None)
  Receive Date: 20080505
  Receipt Date: 20080424
  Transmission Date: 20081010
  Serious: Yes (Other)
  Sender: FDA-Public Use
  Company Number: FR-ELI_LILLY_AND_COMPANY-FR200804003675

PATIENT
  Age: 40 Year
  Sex: Male
  Weight: 119 kg

DRUGS (3)
  1. ZYPREXA [Suspect]
     Indication: SCHIZOPHRENIA
     Dosage: 30 MG, UNK
     Route: 048
     Dates: start: 20010101
  2. HALDOL [Concomitant]
     Indication: SCHIZOPHRENIA
     Dosage: 2 MG, DAILY (1/D)
     Route: 048
     Dates: start: 20010101
  3. LEXOMIL [Concomitant]
     Dosage: 0.25 D/F, DAILY (1/D)
     Route: 048

REACTIONS (3)
  - HYPERCHOLESTEROLAEMIA [None]
  - OVERDOSE [None]
  - WEIGHT INCREASED [None]
